FAERS Safety Report 5780942-5 (Version None)
Quarter: 2008Q2

REPORT INFORMATION
  Report Type: 
  Country: None (occurrence: None)
  Receive Date: 20080620
  Receipt Date: 20080616
  Transmission Date: 20081010
  Serious: Yes (Disabling)
  Sender: FDA-Public Use
  Company Number: JP-PFIZER INC-2008048204

PATIENT
  Sex: Male

DRUGS (2)
  1. ATARAX [Suspect]
     Indication: ANXIETY
     Route: 030
  2. PENTAGIN [Concomitant]
     Route: 030

REACTIONS (1)
  - DENERVATION ATROPHY [None]
